FAERS Safety Report 9785910 (Version 2)
Quarter: 2014Q1

REPORT INFORMATION
  Report Type: Spontaneous
  Country: US (occurrence: US)
  Receive Date: 20131227
  Receipt Date: 20140123
  Transmission Date: 20141002
  Serious: No
  Sender: FDA-Public Use
  Company Number: US-PFIZER INC-2013370049

PATIENT
  Age: 67 Year
  Sex: Female
  Weight: 48.53 kg

DRUGS (8)
  1. XELJANZ [Suspect]
     Indication: RHEUMATOID ARTHRITIS
     Dosage: 5 MG, 2X/DAY
     Route: 048
     Dates: start: 201308
  2. XELJANZ [Suspect]
     Dosage: 5 MG, QD THEN BID
     Route: 048
     Dates: start: 20130627
  3. VIVELLE [Concomitant]
     Dosage: UNK
  4. MIRALAX [Concomitant]
     Dosage: UNK
  5. ASPIRIN [Concomitant]
     Dosage: 5 GRAIN, QAM (EVERY MORNING)
  6. OMEPRAZOLE [Concomitant]
     Dosage: 20 MG, 1X/DAY
     Route: 048
  7. FOLIC ACID [Concomitant]
     Dosage: 1 MG, 1X/DAY
     Route: 048
  8. MULTIVITAMINS [Concomitant]
     Dosage: UNK

REACTIONS (3)
  - Dry mouth [Recovering/Resolving]
  - Dry eye [Recovering/Resolving]
  - Fatigue [Unknown]
